FAERS Safety Report 11082606 (Version 1)
Quarter: 2015Q2

REPORT INFORMATION
  Report Type: Spontaneous
  Country: US (occurrence: US)
  Receive Date: 20150501
  Receipt Date: 20150501
  Transmission Date: 20150821
  Serious: No
  Sender: FDA-Public Use
  Company Number: US-ABBVIE-14P-163-1237429-00

PATIENT
  Age: 60 Year
  Sex: Male
  Weight: 81.72 kg

DRUGS (3)
  1. UNKNOWN BLOOD PRESSURE MEDICATION [Concomitant]
     Active Substance: UNSPECIFIED INGREDIENT
     Indication: HYPERTENSION
  2. ANDROGEL [Suspect]
     Active Substance: TESTOSTERONE
     Indication: BLOOD TESTOSTERONE DECREASED
     Dosage: 2 PUMPS DAILY, STRENGTH 20.25 MG
     Route: 061
     Dates: start: 201401, end: 201403
  3. UNKNOWN THYROID MEDICATION [Concomitant]
     Indication: THYROID DISORDER

REACTIONS (5)
  - Application site pain [Recovered/Resolved]
  - Skin irritation [Recovered/Resolved]
  - Acne [Recovered/Resolved]
  - Skin fissures [Recovered/Resolved]
  - Dry skin [Recovered/Resolved]

NARRATIVE: CASE EVENT DATE: 201402
